FAERS Safety Report 7017075-6 (Version None)
Quarter: 2010Q3

REPORT INFORMATION
  Report Type: 
  Country: None (occurrence: None)
  Receive Date: 20100927
  Receipt Date: 20100921
  Transmission Date: 20110219
  Serious: No
  Sender: FDA-Public Use
  Company Number: US-PFIZER INC-2010111196

PATIENT
  Sex: Male

DRUGS (1)
  1. NICOTROL [Suspect]
     Indication: SMOKING CESSATION THERAPY
     Dosage: 10 MG, 10-15 PUFFS DAILY
     Dates: start: 20100826, end: 20100901

REACTIONS (1)
  - DRUG INEFFECTIVE [None]
